FAERS Safety Report 5226448-3 (Version None)
Quarter: 2007Q1

REPORT INFORMATION
  Report Type: 
  Country: None (occurrence: None)
  Receive Date: 20070201
  Receipt Date: 20061017
  Transmission Date: 20070707
  Serious: Yes (Other)
  Sender: FDA-Public Use
  Company Number: US-PFIZER INC-2006129725

PATIENT
  Sex: Female
  Weight: 74.8 kg

DRUGS (5)
  1. CELEBREX [Suspect]
     Indication: RHEUMATOID ARTHRITIS
  2. ZOCOR [Concomitant]
  3. VALIUM [Concomitant]
  4. ULTRACET [Concomitant]
  5. TORADOL [Concomitant]

REACTIONS (1)
  - HAEMATOMA [None]
